FAERS Safety Report 9150176 (Version 2)
Quarter: 2013Q1

REPORT INFORMATION
  Report Type: Report from Study
  Country: DE (occurrence: DE)
  Receive Date: 20130308
  Receipt Date: 20130314
  Transmission Date: 20140127
  Serious: Yes (Other)
  Sender: FDA-Public Use
  Company Number: DE-ROCHE-1196665

PATIENT
  Age: 42 Year
  Sex: Male
  Weight: 118 kg

DRUGS (9)
  1. RITUXIMAB [Suspect]
     Indication: B-CELL LYMPHOMA
     Dosage: DATE OF LAST DOSE PRIOR TO SAE: 22 JUL 2010
     Route: 042
     Dates: start: 20100427
  2. BENDAMUSTINE [Suspect]
     Indication: B-CELL LYMPHOMA
     Dosage: 2 X 214 D1 + D2    DATE OF LAST DOSE PRIOR TO SAE: 23 JUL 2010
     Route: 042
     Dates: start: 20100423
  3. PANTOZOL [Concomitant]
     Route: 065
     Dates: start: 20100420, end: 20100818
  4. ESIDRIX [Concomitant]
     Route: 065
     Dates: start: 20100622
  5. RAMIPRIL [Concomitant]
     Route: 065
     Dates: start: 20100622
  6. DIFLUCAN [Concomitant]
     Route: 065
  7. TAVANIC [Concomitant]
     Route: 065
  8. TOFRANIL [Concomitant]
     Route: 065
  9. ZOFRAN ZYDIS [Concomitant]
     Route: 065

REACTIONS (1)
  - Hyperuricaemia [Recovered/Resolved]
